FAERS Safety Report 10614701 (Version 2)
Quarter: 2014Q4

REPORT INFORMATION
  Report Type: Report from Study
  Country: DE (occurrence: DE)
  Receive Date: 20141201
  Receipt Date: 20141218
  Transmission Date: 20150529
  Serious: Yes (Hospitalization)
  Sender: FDA-Public Use
  Company Number: DE-ROCHE-1498312

PATIENT
  Age: 66 Year
  Sex: Female
  Weight: 91.2 kg

DRUGS (9)
  1. BEVACIZUMAB [Suspect]
     Active Substance: BEVACIZUMAB
     Indication: BREAST CANCER
     Dosage: 1368 - 1322 MG; LAST DOSE: 04/NOV/2014
     Route: 042
     Dates: start: 20140701
  2. DEXAMETHASON [Concomitant]
     Active Substance: DEXAMETHASONE
     Dosage: ON D-1 (CYCLICAL)
     Route: 048
     Dates: start: 20140630, end: 20140916
  3. TAVEGIL [Concomitant]
     Active Substance: CLEMASTINE FUMARATE
     Dosage: ON D1(CYCLICAL)
     Route: 042
     Dates: start: 20140916, end: 20140916
  4. DEXAMETHASON [Concomitant]
     Active Substance: DEXAMETHASONE
     Route: 042
     Dates: start: 20140701, end: 20140916
  5. RANITIDIN [Concomitant]
     Active Substance: RANITIDINE HYDROCHLORIDE
     Dosage: ON D1
     Route: 042
     Dates: start: 20140701, end: 20140916
  6. CIPROFLOXACIN. [Concomitant]
     Active Substance: CIPROFLOXACIN
     Route: 048
     Dates: start: 20140923, end: 20140927
  7. PACLITAXEL. [Concomitant]
     Active Substance: PACLITAXEL
     Indication: BREAST CANCER
     Dosage: 148-146 MG
     Route: 042
     Dates: start: 20140701, end: 20140916
  8. FENISTIL (DIMETINDENE MALEATE) [Concomitant]
     Dosage: ON D1 (CYCLICAL)
     Route: 042
     Dates: start: 20140701, end: 20140909
  9. ONDANSETRON [Concomitant]
     Active Substance: ONDANSETRON
     Dosage: ON D1 (CYCLICAL)
     Route: 042
     Dates: start: 20140701, end: 20140916

REACTIONS (1)
  - Sudden hearing loss [Not Recovered/Not Resolved]

NARRATIVE: CASE EVENT DATE: 20141111
